FAERS Safety Report 16589034 (Version 1)
Quarter: 2019Q3

REPORT INFORMATION
  Report Type: Spontaneous
  Country: SE (occurrence: SE)
  Receive Date: 20190718
  Receipt Date: 20190718
  Transmission Date: 20191004
  Serious: Yes (Other)
  Sender: FDA-Public Use
  Company Number: SE-TEVA-2019-SE-1080580

PATIENT
  Age: 45 Year
  Sex: Male

DRUGS (1)
  1. OXASCAND [Suspect]
     Active Substance: OXAZEPAM
     Dosage: 10 MILLIGRAM DAILY;
     Route: 048

REACTIONS (3)
  - Fatigue [Not Recovered/Not Resolved]
  - Daydreaming [Not Recovered/Not Resolved]
  - Psychotic disorder [Not Recovered/Not Resolved]
